FAERS Safety Report 23262572 (Version 1)
Quarter: 2023Q4

REPORT INFORMATION
  Report Type: Spontaneous
  Country: US (occurrence: US)
  Receive Date: 20231205
  Receipt Date: 20231205
  Transmission Date: 20240109
  Serious: No
  Sender: FDA-Public Use
  Company Number: US-ABBVIE-5517969

PATIENT
  Age: 60 Year
  Sex: Female
  Weight: 92 kg

DRUGS (3)
  1. LINZESS [Suspect]
     Active Substance: LINACLOTIDE
     Indication: Irritable bowel syndrome
     Dosage: 1 CAPSULE, FORM STRENGTH 290 MICROGRAM, START DATE TEXT: 7 YEARS AGO
     Route: 048
     Dates: start: 2016
  2. LINZESS [Suspect]
     Active Substance: LINACLOTIDE
     Indication: Irritable bowel syndrome
     Dosage: FORM STRENGTH 145 MICROGRAM, START DATE TEXT: 7 YEARS AGO, STOP DATE TEXT: 30 DAYS SUPPLY ONLY
     Route: 048
     Dates: start: 2016, end: 2016
  3. SYNTHROID [Concomitant]
     Active Substance: LEVOTHYROXINE SODIUM
     Indication: Hypothyroidism

REACTIONS (1)
  - Drug ineffective [Not Recovered/Not Resolved]

NARRATIVE: CASE EVENT DATE: 20231001
